FAERS Safety Report 9053308 (Version 1)
Quarter: 2013Q1

REPORT INFORMATION
  Report Type: Spontaneous
  Country: IL (occurrence: IL)
  Receive Date: 20130207
  Receipt Date: 20130207
  Transmission Date: 20140127
  Serious: Yes (Hospitalization, Other)
  Sender: FDA-Public Use
  Company Number: IL-B.I. PHARMACEUTICALS,INC./RIDGEFIELD-2013-AP-00081RI

PATIENT
  Age: 75 Year
  Sex: Female

DRUGS (16)
  1. PRADAXA [Suspect]
     Indication: ATRIAL FIBRILLATION
     Dosage: 300 MG
     Route: 048
     Dates: start: 201203, end: 20120906
  2. PRADAXA [Suspect]
     Indication: CEREBROVASCULAR ACCIDENT PROPHYLAXIS
     Dosage: 220 MG
     Route: 048
     Dates: start: 20120906
  3. CARDILOC [Concomitant]
     Dosage: 2.5 MG
     Route: 048
     Dates: start: 20120902
  4. REVATID [Concomitant]
     Dosage: 20 MG
     Route: 048
     Dates: start: 20120902
  5. ALLORIL [Concomitant]
     Dosage: 100 MG
     Route: 048
     Dates: start: 20120902
  6. INSULIN APIDRA [Concomitant]
     Dosage: 48 U
     Route: 058
     Dates: start: 20120902
  7. AUGMENTIN [Concomitant]
     Dosage: 1750 MG
     Route: 048
     Dates: start: 20120902
  8. V-DALGIN [Concomitant]
     Dosage: 3 CC UP TO 4/D - SOS
     Route: 048
     Dates: start: 20120903
  9. FOLIC ACID [Concomitant]
     Dosage: 5MG X/D
     Route: 048
     Dates: start: 20120905
  10. INSULIN LANTUS [Concomitant]
     Dosage: 40 U
     Route: 058
     Dates: start: 20120902
  11. OPTALGIN [Concomitant]
     Dosage: 3 CC X UP TO 4/D - SOS
     Route: 048
     Dates: start: 20120911
  12. FUSID [Concomitant]
     Dosage: 80 MG
     Route: 048
     Dates: start: 20120902
  13. CIPROFLOXACIN [Concomitant]
     Dosage: 500 MG
     Route: 048
     Dates: start: 20120911
  14. CREAM SILVEROL [Concomitant]
     Dosage: APPLY ON WOUNDS X 2/D
     Route: 061
     Dates: start: 20120911
  15. ELTROXIN [Concomitant]
     Dosage: 100 MCG
     Route: 048
     Dates: start: 20120902
  16. BONDORMIN [Concomitant]
     Dosage: 0.25MG X 1/D
     Route: 048
     Dates: start: 20120902

REACTIONS (23)
  - Peripheral artery thrombosis [Not Recovered/Not Resolved]
  - Cellulitis [Not Recovered/Not Resolved]
  - Limb injury [Not Recovered/Not Resolved]
  - Pyrexia [Unknown]
  - Pain in extremity [Unknown]
  - Feeling cold [Unknown]
  - Confusional state [Unknown]
  - Erythema [Unknown]
  - Leukocytosis [Unknown]
  - Blood creatine phosphokinase increased [Unknown]
  - Blood lactate dehydrogenase increased [Unknown]
  - Rhabdomyolysis [Unknown]
  - Peripheral embolism [Unknown]
  - Urine analysis abnormal [Unknown]
  - Liver disorder [Unknown]
  - Cholelithiasis [Unknown]
  - Kidney small [Unknown]
  - Gallbladder enlargement [Unknown]
  - Ventricular extrasystoles [Unknown]
  - Tricuspid valve incompetence [Unknown]
  - Pulmonary hypertension [Unknown]
  - Renal impairment [Unknown]
  - Inflammation [Unknown]
